FAERS Safety Report 5671006-X (Version None)
Quarter: 2008Q1

REPORT INFORMATION
  Report Type: 
  Country: None (occurrence: None)
  Receive Date: 20080312
  Receipt Date: 20080228
  Transmission Date: 20080703
  Serious: Yes (Other)
  Sender: FDA-Public Use
  Company Number: CHPA2008US03731

PATIENT
  Age: 37 Year
  Sex: Female

DRUGS (1)
  1. EX-LAX REG STR CHOCOLATED LAX PCS SEN (NCH)(SENNA GLYCOSIDES (CA SALTS [Suspect]
     Indication: CONSTIPATION
     Dosage: 45 MG, ONCE/SINGLE, ORAL
     Route: 048
     Dates: start: 20080227, end: 20080227

REACTIONS (2)
  - DIARRHOEA [None]
  - HAEMATOCHEZIA [None]
